FAERS Safety Report 5625320-4 (Version None)
Quarter: 2008Q1

REPORT INFORMATION
  Report Type: 
  Country: None (occurrence: None)
  Receive Date: 20080211
  Receipt Date: 20080204
  Transmission Date: 20080703
  Serious: Yes (Death)
  Sender: FDA-Public Use
  Company Number: 2008-00724

PATIENT
  Age: 36 Year
  Sex: Male

DRUGS (3)
  1. DEXTROAMPHETAMINE SAC/SLF, AMPHETAMINE ASP/SLF 5 (MIXED SALTS) (WATSON [Suspect]
  2. ETHYLENE GLYCOL() [Suspect]
  3. COCAINE (COCAINE) [Suspect]

REACTIONS (1)
  - CARDIO-RESPIRATORY ARREST [None]
